FAERS Safety Report 7654696-1 (Version None)
Quarter: 2011Q3

REPORT INFORMATION
  Report Type: 
  Country: None (occurrence: None)
  Receive Date: 20110804
  Receipt Date: 20110729
  Transmission Date: 20111222
  Serious: Yes (Hospitalization)
  Sender: FDA-Public Use
  Company Number: US-BIOGENIDEC-2011BI026353

PATIENT
  Age: 35 Year
  Sex: Male

DRUGS (2)
  1. AVONEX [Suspect]
     Indication: MULTIPLE SCLEROSIS
     Route: 030
     Dates: start: 20070601
  2. AVONEX [Suspect]
     Route: 030
     Dates: start: 20050201, end: 20050701

REACTIONS (5)
  - TRAUMATIC LUNG INJURY [None]
  - ROAD TRAFFIC ACCIDENT [None]
  - EXCORIATION [None]
  - HIP FRACTURE [None]
  - RIB FRACTURE [None]
